FAERS Safety Report 5939279-3 (Version None)
Quarter: 2008Q4

REPORT INFORMATION
  Report Type: 
  Country: None (occurrence: None)
  Receive Date: 20081103
  Receipt Date: 20081022
  Transmission Date: 20090506
  Serious: Yes (Hospitalization)
  Sender: FDA-Public Use
  Company Number: US-PFIZER INC-2008084319

PATIENT
  Sex: Male
  Weight: 88 kg

DRUGS (10)
  1. SUTENT [Suspect]
     Indication: RENAL CELL CARCINOMA
     Route: 048
     Dates: start: 20080909
  2. ERLOTINIB [Suspect]
     Indication: RENAL CELL CARCINOMA
     Route: 048
     Dates: start: 20080909
  3. ALEVE [Concomitant]
     Dosage: FREQ:DAILY
     Route: 048
  4. ALLOPURINOL [Concomitant]
     Route: 048
  5. LIPITOR [Concomitant]
     Route: 048
  6. LISINOPRIL [Concomitant]
     Route: 048
  7. MINOCYCLINE HCL [Concomitant]
     Route: 048
  8. NIACIN [Concomitant]
     Route: 048
  9. PROTONIX [Concomitant]
     Route: 048
  10. KLOR-CON [Concomitant]
     Route: 048

REACTIONS (1)
  - SYNCOPE [None]
